FAERS Safety Report 4589728-0 (Version None)
Quarter: 2005Q1

REPORT INFORMATION
  Report Type: 
  Country: None (occurrence: None)
  Receive Date: 20050217
  Receipt Date: 20050204
  Transmission Date: 20050727
  Serious: Yes (Death)
  Sender: FDA-Public Use
  Company Number: 2005-BP-00851YA

PATIENT
  Age: 80 Year
  Sex: Male

DRUGS (6)
  1. HARNAL (TAMSULOSIN) (KA) [Suspect]
     Indication: BENIGN PROSTATIC HYPERPLASIA
     Dosage: (SEE TEXT, 0.2 MG QD PO
     Route: 048
     Dates: start: 20020101, end: 20041230
  2. PL GRANULE [Suspect]
     Indication: NASOPHARYNGITIS
     Dosage: 3G (1G, 1 G TID) PO
     Route: 048
     Dates: start: 20041228, end: 20041230
  3. RANITIDINE HYDROCHLORIDE [Concomitant]
  4. RYUTAN-SHAKAN-TO [Concomitant]
  5. PRULIFLOXACIN (PRULIFLOXACIN) [Concomitant]
  6. BROTIZOLAM [Concomitant]

REACTIONS (5)
  - INTERSTITIAL LUNG DISEASE [None]
  - LYMPHOCYTE STIMULATION TEST POSITIVE [None]
  - NASOPHARYNGITIS [None]
  - THERAPY NON-RESPONDER [None]
  - UPPER RESPIRATORY TRACT INFLAMMATION [None]
